FAERS Safety Report 4637535-2 (Version None)
Quarter: 2005Q1

REPORT INFORMATION
  Report Type: 
  Country: None (occurrence: None)
  Receive Date: 20050325
  Receipt Date: 20050112
  Transmission Date: 20050727
  Serious: No
  Sender: FDA-Public Use
  Company Number: USA040464415

PATIENT
  Age: 68 Year
  Sex: Female
  Weight: 45 kg

DRUGS (4)
  1. FORTEO [Suspect]
     Indication: OSTEOPOROSIS
     Dosage: 20 UG/1 DAY
     Dates: start: 20040315
  2. TRAVATAN [Concomitant]
  3. CALCIUM CARBONATE + VITAMIN D [Concomitant]
  4. MULTIVITAMINS NOS(MULTIVITAMINS NOS) [Concomitant]

REACTIONS (3)
  - ERYTHEMA [None]
  - MUSCLE SPASMS [None]
  - PRURITUS [None]
